FAERS Safety Report 7288690-X (Version None)
Quarter: 2011Q1

REPORT INFORMATION
  Report Type: 
  Country: None (occurrence: None)
  Receive Date: 20110211
  Receipt Date: 20110209
  Transmission Date: 20110831
  Serious: Yes (Hospitalization, Other)
  Sender: FDA-Public Use
  Company Number: BR-ABBOTT-11P-020-0703984-00

PATIENT
  Sex: Female
  Weight: 89 kg

DRUGS (4)
  1. PREDNISONE [Suspect]
     Indication: RHEUMATOID ARTHRITIS
  2. HUMIRA [Suspect]
     Indication: RHEUMATOID ARTHRITIS
     Route: 058
     Dates: start: 20100203, end: 20101201
  3. ARAVA [Concomitant]
     Indication: RHEUMATOID ARTHRITIS
  4. PREDNISONE [Suspect]
     Indication: LUNG DISORDER

REACTIONS (6)
  - TENDON RUPTURE [None]
  - FALL [None]
  - CATARACT [None]
  - VISUAL IMPAIRMENT [None]
  - DRUG INEFFECTIVE [None]
  - EXOSTOSIS [None]
